FAERS Safety Report 9112140 (Version 1)
Quarter: 2013Q1

REPORT INFORMATION
  Report Type: Spontaneous
  Country: US (occurrence: US)
  Receive Date: 20130219
  Receipt Date: 20130219
  Transmission Date: 20140127
  Serious: No
  Sender: FDA-Public Use
  Company Number: US-BRISTOL-MYERS SQUIBB COMPANY-16547960

PATIENT
  Age: 65 Year
  Sex: Female
  Weight: 81.63 kg

DRUGS (1)
  1. ORENCIA FOR INJ [Suspect]
     Indication: RHEUMATOID ARTHRITIS
     Dosage: LAST DOSE:28JAN2012?COMMERCIAL ORENCIA SUBQ STARTED ON MAR2012,LOT #1K67562
     Route: 058
     Dates: start: 200703

REACTIONS (1)
  - Rheumatoid arthritis [Unknown]
